FAERS Safety Report 9162196 (Version 1)
Quarter: 2013Q1

REPORT INFORMATION
  Report Type: Spontaneous
  Country: DE (occurrence: DE)
  Receive Date: 20130314
  Receipt Date: 20130314
  Transmission Date: 20140127
  Serious: Yes (Hospitalization, Other)
  Sender: FDA-Public Use
  Company Number: PHHY2013DE023117

PATIENT
  Sex: Female

DRUGS (2)
  1. LEPONEX [Suspect]
     Dosage: 400 MG,
     Dates: start: 2007
  2. CHEMOTHERAPEUTICS [Suspect]
     Indication: NON-HODGKIN^S LYMPHOMA
     Dosage: UNK

REACTIONS (3)
  - Thrombocytopenia [Not Recovered/Not Resolved]
  - Non-Hodgkin^s lymphoma [Unknown]
  - Neutropenia [Not Recovered/Not Resolved]
